FAERS Safety Report 5977478-5 (Version None)
Quarter: 2008Q4

REPORT INFORMATION
  Report Type: 
  Country: None (occurrence: None)
  Receive Date: 20081203
  Receipt Date: 20081124
  Transmission Date: 20090506
  Serious: Yes (Hospitalization, Other)
  Sender: FDA-Public Use
  Company Number: US-AVENTIS-200821023GDDC

PATIENT
  Age: 78 Year
  Sex: Male
  Weight: 109.6 kg

DRUGS (3)
  1. TAXOTERE [Suspect]
     Route: 042
     Dates: start: 20081021, end: 20081110
  2. PREDNISONE TAB [Suspect]
     Route: 048
     Dates: start: 20081021, end: 20081124
  3. CODE UNBROKEN [Suspect]
     Route: 048
     Dates: start: 20081021, end: 20081104

REACTIONS (8)
  - ANAEMIA [None]
  - ANOREXIA [None]
  - BLOOD ALKALINE PHOSPHATASE [None]
  - DIARRHOEA [None]
  - HYPOCALCAEMIA [None]
  - MUSCULAR WEAKNESS [None]
  - NEUTROPENIC INFECTION [None]
  - PLEURAL EFFUSION [None]
